FAERS Safety Report 6592864-0 (Version None)
Quarter: 2010Q1

REPORT INFORMATION
  Report Type: 
  Country: None (occurrence: None)
  Receive Date: 20100212
  Receipt Date: 20100203
  Transmission Date: 20100710
  Serious: Yes (Death, Life-Threatening, Hospitalization, Disabling)
  Sender: FDA-Public Use
  Company Number: 2008SP009470

PATIENT
  Age: 68 Year
  Sex: Female
  Weight: 66.5 kg

DRUGS (12)
  1. TEMODAL [Suspect]
     Indication: GLIOBLASTOMA
     Dosage: 120 MG; QD; PO; 150 MG; QD; PO
     Route: 048
     Dates: start: 20080403, end: 20080410
  2. TEMODAL [Suspect]
     Indication: GLIOBLASTOMA
     Dosage: 120 MG; QD; PO; 150 MG; QD; PO
     Route: 048
     Dates: start: 20080410, end: 20080428
  3. EPILAN-D [Concomitant]
  4. NEXIUM [Concomitant]
  5. TRAZODONE HCL [Concomitant]
  6. AMLODIPINE [Concomitant]
  7. BLOPRESS [Concomitant]
     Indication: SARCOMA
  8. THYREX [Concomitant]
  9. SEROQUEL [Concomitant]
  10. CITALOPRAM HYDROCHLORIDE [Concomitant]
  11. BACTRIM DS [Concomitant]
  12. KYTRIL [Concomitant]

REACTIONS (2)
  - PANCYTOPENIA [None]
  - SEPSIS [None]
